FAERS Safety Report 20958867 (Version 3)
Quarter: 2022Q3

REPORT INFORMATION
  Report Type: Report from Study
  Country: CA (occurrence: CA)
  Receive Date: 20220614
  Receipt Date: 20220923
  Transmission Date: 20221026
  Serious: Yes (Hospitalization, Other)
  Sender: FDA-Public Use
  Company Number: CA-OTSUKA-2022_016764

PATIENT
  Age: 63 Year
  Sex: Female

DRUGS (2)
  1. CEDAZURIDINE\DECITABINE [Suspect]
     Active Substance: CEDAZURIDINE\DECITABINE
     Indication: Chronic myelomonocytic leukaemia
     Dosage: UNK (5 PILLS PER CYCLE)
     Route: 065
     Dates: start: 20220319
  2. VITAMINS [Concomitant]
     Active Substance: VITAMINS
     Indication: Product used for unknown indication
     Dosage: UNK
     Route: 065

REACTIONS (12)
  - Transfusion [Recovered/Resolved]
  - Nephrolithiasis [Unknown]
  - Infection [Unknown]
  - Infection [Recovered/Resolved]
  - Pneumonia [Recovering/Resolving]
  - White blood cell count decreased [Unknown]
  - Platelet count decreased [Unknown]
  - Arthralgia [Recovered/Resolved]
  - Weight decreased [Unknown]
  - Contusion [Unknown]
  - Epistaxis [Unknown]
  - Red blood cell count decreased [Unknown]

NARRATIVE: CASE EVENT DATE: 20220319
